FAERS Safety Report 23606814 (Version 1)
Quarter: 2024Q1

REPORT INFORMATION
  Report Type: Report from Study
  Country: US (occurrence: US)
  Receive Date: 20240307
  Receipt Date: 20240307
  Transmission Date: 20240409
  Serious: No
  Sender: FDA-Public Use
  Company Number: US-SANDOZ-SDZ2023US046824

PATIENT
  Sex: Female

DRUGS (1)
  1. GLATOPA [Suspect]
     Active Substance: GLATIRAMER ACETATE
     Indication: Product used for unknown indication
     Dosage: 40 MG N/A DOSE EVERY N/A N/A
     Route: 058

REACTIONS (3)
  - Presyncope [Unknown]
  - Injection site bruising [Unknown]
  - Device mechanical issue [Unknown]
